FAERS Safety Report 11679366 (Version 3)
Quarter: 2015Q4

REPORT INFORMATION
  Report Type: Spontaneous
  Country: US (occurrence: US)
  Receive Date: 20151027
  Receipt Date: 20151110
  Transmission Date: 20160304
  Serious: No
  Sender: FDA-Public Use
  Company Number: US-ELI_LILLY_AND_COMPANY-US200912005794

PATIENT
  Age: 57 Year
  Sex: Female

DRUGS (4)
  1. FORTEO [Suspect]
     Active Substance: TERIPARATIDE
     Dosage: 20 UG, QD
     Route: 065
  2. FORTEO [Suspect]
     Active Substance: TERIPARATIDE
     Indication: OSTEOPOROSIS
     Dosage: 20 UG, DAILY (1/D)
     Route: 065
     Dates: start: 200912, end: 200912
  3. FORTEO [Suspect]
     Active Substance: TERIPARATIDE
     Dosage: 20 UG, QD
  4. FORTEO [Suspect]
     Active Substance: TERIPARATIDE
     Dosage: 20 UG, DAILY (1/D)
     Route: 065
     Dates: start: 201003

REACTIONS (11)
  - Injection site swelling [Unknown]
  - Knee operation [Recovered/Resolved]
  - Fatigue [Unknown]
  - Vitamin D decreased [Unknown]
  - Hyperhidrosis [Unknown]
  - Discomfort [Unknown]
  - Injection site bruising [Not Recovered/Not Resolved]
  - Nausea [Unknown]
  - Malaise [Unknown]
  - Vitamin B complex deficiency [Unknown]
  - Abdominal pain [Unknown]

NARRATIVE: CASE EVENT DATE: 201108
